APPROVED DRUG PRODUCT: DIGOXIN
Active Ingredient: DIGOXIN
Strength: 0.05MG/ML
Dosage Form/Route: ELIXIR;ORAL
Application: A213000 | Product #001 | TE Code: AA
Applicant: VISTAPHARM LLC
Approved: Oct 4, 2019 | RLD: No | RS: No | Type: RX